FAERS Safety Report 16102438 (Version 2)
Quarter: 2020Q2

REPORT INFORMATION
  Report Type: Spontaneous
  Country: US (occurrence: US)
  Receive Date: 20190321
  Receipt Date: 20200403
  Transmission Date: 20200713
  Serious: Yes (Other)
  Sender: FDA-Public Use
  Company Number: US-BAUSCH-BL-2019-008140

PATIENT
  Age: 54 Year
  Sex: Male

DRUGS (2)
  1. PRIMIDONE. [Suspect]
     Active Substance: PRIMIDONE
     Indication: SEIZURE
     Route: 048
     Dates: start: 1980, end: 1980
  2. DILANTIN [Concomitant]
     Active Substance: PHENYTOIN
     Indication: PRODUCT USED FOR UNKNOWN INDICATION
     Dosage: STOPPED 15 YEARS LATER
     Route: 065
     Dates: start: 1971, end: 1986

REACTIONS (3)
  - Product substitution issue [Unknown]
  - Insomnia [Unknown]
  - Cerebral disorder [Unknown]

NARRATIVE: CASE EVENT DATE: 1980
